FAERS Safety Report 15532507 (Version 1)
Quarter: 2018Q4

REPORT INFORMATION
  Report Type: Spontaneous
  Country: US (occurrence: US)
  Receive Date: 20181019
  Receipt Date: 20181019
  Transmission Date: 20190205
  Serious: Yes (Hospitalization, Other)
  Sender: FDA-Public Use
  Company Number: US-BAYER-2018-191922

PATIENT
  Age: 2 Year
  Sex: Female

DRUGS (22)
  1. PHENYTOIN. [Suspect]
     Active Substance: PHENYTOIN
     Indication: FEBRILE INFECTION-RELATED EPILEPSY SYNDROME
  2. PROPOFOL. [Concomitant]
     Active Substance: PROPOFOL
     Indication: FEBRILE INFECTION-RELATED EPILEPSY SYNDROME
  3. VANCOMYCIN [Suspect]
     Active Substance: VANCOMYCIN
  4. METHYLPREDNISOLONE. [Concomitant]
     Active Substance: METHYLPREDNISOLONE
     Indication: FEBRILE INFECTION-RELATED EPILEPSY SYNDROME
  5. LACOSAMIDE. [Suspect]
     Active Substance: LACOSAMIDE
     Indication: FEBRILE INFECTION-RELATED EPILEPSY SYNDROME
  6. CEFTRIAXONE. [Suspect]
     Active Substance: CEFTRIAXONE
  7. LORAZEPAM. [Concomitant]
     Active Substance: LORAZEPAM
     Indication: FEBRILE INFECTION-RELATED EPILEPSY SYNDROME
  8. FELBAMATE. [Concomitant]
     Active Substance: FELBAMATE
     Indication: FEBRILE INFECTION-RELATED EPILEPSY SYNDROME
  9. VALPROIC ACID. [Concomitant]
     Active Substance: VALPROIC ACID
     Indication: FEBRILE INFECTION-RELATED EPILEPSY SYNDROME
  10. FENTANYL. [Concomitant]
     Active Substance: FENTANYL
     Indication: FEBRILE INFECTION-RELATED EPILEPSY SYNDROME
  11. LEVETIRACETAM. [Concomitant]
     Active Substance: LEVETIRACETAM
     Indication: FEBRILE INFECTION-RELATED EPILEPSY SYNDROME
  12. OMEPRAZOLE. [Suspect]
     Active Substance: OMEPRAZOLE
  13. CEFOTAXIME [Suspect]
     Active Substance: CEFOTAXIME SODIUM
  14. TOPIRAMATE. [Concomitant]
     Active Substance: TOPIRAMATE
     Indication: FEBRILE INFECTION-RELATED EPILEPSY SYNDROME
  15. ANAKINRA [Concomitant]
     Active Substance: ANAKINRA
     Indication: FEBRILE INFECTION-RELATED EPILEPSY SYNDROME
  16. MIDAZOLAM [Concomitant]
     Active Substance: MIDAZOLAM HYDROCHLORIDE
     Indication: FEBRILE INFECTION-RELATED EPILEPSY SYNDROME
  17. PRECEDEX [Concomitant]
     Active Substance: DEXMEDETOMIDINE HYDROCHLORIDE
     Indication: FEBRILE INFECTION-RELATED EPILEPSY SYNDROME
  18. AMPICILLIN [Suspect]
     Active Substance: AMPICILLIN
  19. PHENOBARBITAL. [Suspect]
     Active Substance: PHENOBARBITAL
     Indication: FEBRILE INFECTION-RELATED EPILEPSY SYNDROME
  20. FOSPHENYTOIN [Suspect]
     Active Substance: FOSPHENYTOIN
     Indication: FEBRILE INFECTION-RELATED EPILEPSY SYNDROME
  21. PARACETAMOL [Suspect]
     Active Substance: ACETAMINOPHEN
     Dosage: UNK
  22. CLONAZEPAM. [Concomitant]
     Active Substance: CLONAZEPAM
     Indication: FEBRILE INFECTION-RELATED EPILEPSY SYNDROME

REACTIONS (8)
  - Bilirubin conjugated increased [Recovering/Resolving]
  - Tachycardia [Recovering/Resolving]
  - Ventricular failure [Recovering/Resolving]
  - Alanine aminotransferase increased [Recovering/Resolving]
  - Respiratory acidosis [Recovering/Resolving]
  - Drug reaction with eosinophilia and systemic symptoms [Recovering/Resolving]
  - Laryngeal stenosis [Recovering/Resolving]
  - Aspartate aminotransferase increased [Recovering/Resolving]
